FAERS Safety Report 10565201 (Version 1)
Quarter: 2014Q4

REPORT INFORMATION
  Report Type: Spontaneous
  Country: US (occurrence: None)
  Receive Date: 20141104
  Receipt Date: 20141104
  Transmission Date: 20150529
  Serious: Yes (Other)
  Sender: FDA-Public Use
  Company Number: None

PATIENT
  Age: 43 Year
  Sex: Female
  Weight: 57.61 kg

DRUGS (1)
  1. NUCYNTA [Suspect]
     Active Substance: TAPENTADOL HYDROCHLORIDE
     Indication: PAIN
     Dosage: 100 MG. EVERY 12 HRS. PRN
     Dates: start: 20140923, end: 20141012

REACTIONS (6)
  - Paralysis [None]
  - Tremor [None]
  - Fear [None]
  - Muscle spasms [None]
  - Hallucination [None]
  - Palpitations [None]

NARRATIVE: CASE EVENT DATE: 20140923
